FAERS Safety Report 18362893 (Version 1)
Quarter: 2020Q4

REPORT INFORMATION
  Report Type: Spontaneous
  Country: BE (occurrence: BE)
  Receive Date: 20201008
  Receipt Date: 20201008
  Transmission Date: 20210114
  Serious: Yes (Other)
  Sender: FDA-Public Use
  Company Number: BE-GILEAD-2020-0496892

PATIENT
  Age: 45 Year
  Sex: Female
  Weight: 46 kg

DRUGS (3)
  1. DELSTRIGO [Concomitant]
     Active Substance: DORAVIRINE\LAMIVUDINE\TENOFOVIR DISOPROXIL FUMARATE
  2. TRUVADA [Suspect]
     Active Substance: EMTRICITABINE\TENOFOVIR DISOPROXIL FUMARATE
     Indication: HIV INFECTION
     Dosage: UNK
     Route: 065
     Dates: start: 20160227, end: 20161205
  3. BIKTARVY [Suspect]
     Active Substance: BICTEGRAVIR SODIUM\EMTRICITABINE\TENOFOVIR ALAFENAMIDE FUMARATE
     Indication: HIV INFECTION
     Dosage: 1 DOSAGE FORM, QD
     Route: 065
     Dates: start: 20190115

REACTIONS (4)
  - Genotype drug resistance test positive [Unknown]
  - Drug ineffective [Unknown]
  - Weight increased [Unknown]
  - Viral load increased [Unknown]

NARRATIVE: CASE EVENT DATE: 20190715
